FAERS Safety Report 13167465 (Version 1)
Quarter: 2017Q1

REPORT INFORMATION
  Report Type: Spontaneous
  Country: US (occurrence: US)
  Receive Date: 20170131
  Receipt Date: 20170131
  Transmission Date: 20170428
  Serious: Yes (Disabling)
  Sender: FDA-Public Use
  Company Number: None

PATIENT
  Age: 41 Year
  Sex: Male
  Weight: 116.12 kg

DRUGS (2)
  1. GENERIC CELEXA [Suspect]
     Active Substance: CITALOPRAM HYDROBROMIDE
     Indication: OSTEOPOROSIS
     Route: 048
     Dates: start: 20131127, end: 20131211
  2. GENERIC CELEXA [Suspect]
     Active Substance: CITALOPRAM HYDROBROMIDE
     Indication: ANXIETY DISORDER
     Route: 048
     Dates: start: 20131127, end: 20131211

REACTIONS (3)
  - Product substitution issue [None]
  - Feeling abnormal [None]
  - General physical health deterioration [None]

NARRATIVE: CASE EVENT DATE: 20131211
